FAERS Safety Report 18229284 (Version 1)
Quarter: 2020Q3

REPORT INFORMATION
  Report Type: Spontaneous
  Country: US (occurrence: US)
  Receive Date: 20200903
  Receipt Date: 20200903
  Transmission Date: 20201103
  Serious: No
  Sender: FDA-Public Use
  Company Number: US-PERRIGO-19US009765

PATIENT
  Age: 61 Year
  Sex: Female
  Weight: 58.96 kg

DRUGS (4)
  1. EVAMIST [Suspect]
     Active Substance: ESTRADIOL
     Indication: HORMONE REPLACEMENT THERAPY
     Dosage: 3.06 MG, QD
     Route: 062
     Dates: start: 201512, end: 2018
  2. EVAMIST [Suspect]
     Active Substance: ESTRADIOL
     Dosage: UNKNOWN, QD
     Route: 062
     Dates: start: 20190805, end: 20190808
  3. EVAMIST [Suspect]
     Active Substance: ESTRADIOL
     Dosage: 1.53 MG, QD
     Route: 062
     Dates: start: 20190809
  4. EVAMIST [Suspect]
     Active Substance: ESTRADIOL
     Dosage: 1.53 MG, QD
     Route: 062
     Dates: start: 2018, end: 20190804

REACTIONS (1)
  - Underdose [Recovered/Resolved]

NARRATIVE: CASE EVENT DATE: 20190805
